FAERS Safety Report 5325176-3 (Version None)
Quarter: 2007Q2

REPORT INFORMATION
  Report Type: 
  Country: None (occurrence: None)
  Receive Date: 20070515
  Receipt Date: 20070514
  Transmission Date: 20071010
  Serious: Yes (Other)
  Sender: FDA-Public Use
  Company Number: A0651211A

PATIENT
  Sex: Male

DRUGS (5)
  1. ADVAIR DISKUS 100/50 [Suspect]
     Indication: CHRONIC OBSTRUCTIVE PULMONARY DISEASE
     Dosage: 1PUFF TWICE PER DAY
     Route: 055
  2. EYE DROPS [Suspect]
     Indication: DRUG USE FOR UNKNOWN INDICATION
     Route: 047
  3. COMBIVENT [Concomitant]
  4. PAINKILLER [Concomitant]
  5. THYROID TAB [Concomitant]

REACTIONS (6)
  - CATARACT [None]
  - IMPAIRED HEALING [None]
  - INTRAOCULAR PRESSURE INCREASED [None]
  - MACULAR DEGENERATION [None]
  - VIRAL INFECTION [None]
  - VISUAL ACUITY REDUCED [None]
